FAERS Safety Report 10183413 (Version 1)
Quarter: 2014Q2

REPORT INFORMATION
  Report Type: Spontaneous
  Country: US (occurrence: US)
  Receive Date: 20140520
  Receipt Date: 20140520
  Transmission Date: 20141212
  Serious: No
  Sender: FDA-Public Use
  Company Number: US-PFIZER INC-2014135135

PATIENT
  Age: 53 Year
  Sex: Female
  Weight: 111 kg

DRUGS (2)
  1. ADVIL [Suspect]
     Indication: PAIN
     Dosage: 600 MG (200 MG X 3 TABLETS) DAILY AT BED TIME
     Route: 048
     Dates: end: 20140512
  2. PAXIL [Concomitant]
     Dosage: UNK

REACTIONS (2)
  - Extra dose administered [Unknown]
  - Hepatic enzyme increased [Unknown]
